FAERS Safety Report 8652801 (Version 2)
Quarter: 2012Q4

REPORT INFORMATION
  Report Type: Report from Study
  Country: CA (occurrence: CA)
  Receive Date: 20120706
  Receipt Date: 20120907
  Transmission Date: 20130627
  Serious: Yes (Hospitalization)
  Sender: FDA-Public Use
  Company Number: CA-JNJFOC-20120613048

PATIENT
  Age: 39 None
  Sex: Male
  Weight: 108.86 kg

DRUGS (3)
  1. REMICADE [Suspect]
     Indication: ANKYLOSING SPONDYLITIS
     Route: 042
     Dates: start: 20120829
  2. REMICADE [Suspect]
     Indication: ANKYLOSING SPONDYLITIS
     Dosage: 500 (units unspecified)
     Route: 042
     Dates: start: 20051020
  3. AERIUS [Concomitant]
     Indication: PREMEDICATION
     Route: 065

REACTIONS (6)
  - Pneumonia [Unknown]
  - Drug specific antibody present [Unknown]
  - Rib fracture [Unknown]
  - Gastroenteritis viral [Unknown]
  - Loss of consciousness [Unknown]
  - Thoracic vertebral fracture [Unknown]
